FAERS Safety Report 17184711 (Version 1)
Quarter: 2019Q4

REPORT INFORMATION
  Report Type: Spontaneous
  Country: SE (occurrence: SE)
  Receive Date: 20191220
  Receipt Date: 20191220
  Transmission Date: 20200122
  Serious: Yes (Hospitalization)
  Sender: FDA-Public Use
  Company Number: SE-MYLANLABS-2019M1125466

PATIENT
  Age: 25 Year
  Sex: Female
  Weight: 55 kg

DRUGS (2)
  1. LERGIGAN (PROMETHAZINE) [Suspect]
     Active Substance: PROMETHAZINE HYDROCHLORIDE
     Indication: PRODUCT USED FOR UNKNOWN INDICATION
     Dosage: TVA
     Dates: start: 20190813, end: 20190813
  2. TRAMADOL. [Suspect]
     Active Substance: TRAMADOL
     Indication: PRODUCT USED FOR UNKNOWN INDICATION
     Dosage: 100 MILLIGRAM, TOTAL
     Dates: start: 20190813, end: 20190813

REACTIONS (5)
  - Intentional self-injury [Unknown]
  - Depressed level of consciousness [Unknown]
  - Abdominal pain upper [Unknown]
  - Intentional overdose [Unknown]
  - Fatigue [Unknown]

NARRATIVE: CASE EVENT DATE: 20190813
